FAERS Safety Report 12788314 (Version 1)
Quarter: 2016Q3

REPORT INFORMATION
  Report Type: Spontaneous
  Country: US (occurrence: US)
  Receive Date: 20160928
  Receipt Date: 20160928
  Transmission Date: 20161109
  Serious: Yes (Other)
  Sender: FDA-Public Use
  Company Number: US-AMGEN-USASP2016130702

PATIENT
  Age: 79 Year
  Sex: Male

DRUGS (2)
  1. ENBREL [Suspect]
     Active Substance: ETANERCEPT
     Indication: RHEUMATOID ARTHRITIS
     Dosage: UNK
     Route: 065
     Dates: start: 201102, end: 201207
  2. XELJANZ [Concomitant]
     Active Substance: TOFACITINIB CITRATE
     Indication: RHEUMATOID ARTHRITIS
     Dosage: 11 MG, QMO
     Route: 048

REACTIONS (11)
  - Joint range of motion decreased [Unknown]
  - Joint swelling [Unknown]
  - Joint effusion [Unknown]
  - Drug effect decreased [Unknown]
  - Arthralgia [Unknown]
  - Decubitus ulcer [Unknown]
  - Muscular weakness [Unknown]
  - Paraplegia [Unknown]
  - Myalgia [Unknown]
  - Musculoskeletal pain [Unknown]
  - Musculoskeletal stiffness [Unknown]

NARRATIVE: CASE EVENT DATE: 20160810
